FAERS Safety Report 4585438-4 (Version None)
Quarter: 2005Q1

REPORT INFORMATION
  Report Type: 
  Country: None (occurrence: None)
  Receive Date: 20050214
  Receipt Date: 20050203
  Transmission Date: 20050727
  Serious: Yes (Hospitalization)
  Sender: FDA-Public Use
  Company Number: 6012936

PATIENT
  Age: 68 Year
  Sex: Male

DRUGS (7)
  1. BISOPROLOL FUMARATE [Suspect]
     Indication: ESSENTIAL HYPERTENSION
     Dosage: 10 MG (10 MG,1 IN 1 D) ORAL
     Route: 048
  2. ALDACTONE [Suspect]
     Indication: ESSENTIAL HYPERTENSION
     Dosage: 12 MG ORAL
     Route: 048
     Dates: start: 20020101, end: 20041213
  3. AMARYL [Suspect]
     Indication: DIABETES MELLITUS
     Dosage: 2 DOSAGE FORMS ORAL
     Route: 048
     Dates: end: 20041212
  4. RAMIPRIL [Suspect]
     Indication: ESSENTIAL HYPERTENSION
     Dosage: 5 MG (2.5 MG, 2 IN 1 D) ORAL
     Route: 048
  5. PAROXETINE HCL [Suspect]
     Indication: DEPRESSION
     Dosage: 20 MG (20 MG, 1 IN 1 D) ORAL
     Route: 048
  6. TRINIPATCH            (POULTICE OR PATCH) (GLYCERYL TRINITRATE) [Suspect]
     Dosage: 10 MG/24 H TRANSDERMAL
     Route: 062
     Dates: start: 20020101, end: 20041213
  7. ZOCOR [Concomitant]

REACTIONS (6)
  - CAROTID ARTERY STENOSIS [None]
  - DIABETES MELLITUS INADEQUATE CONTROL [None]
  - FALL [None]
  - HOT FLUSH [None]
  - MALAISE [None]
  - ORTHOSTATIC HYPOTENSION [None]
